FAERS Safety Report 13388200 (Version 3)
Quarter: 2017Q2

REPORT INFORMATION
  Report Type: Spontaneous
  Country: CA (occurrence: CA)
  Receive Date: 20170331
  Receipt Date: 20170503
  Transmission Date: 20170830
  Serious: Yes (Life-Threatening, Hospitalization)
  Sender: FDA-Public Use
  Company Number: PHHY2017CA045883

PATIENT
  Age: 45 Year
  Sex: Male

DRUGS (2)
  1. DIMENHYDRINATE SANDOZ [Suspect]
     Active Substance: DIMENHYDRINATE
     Indication: PRODUCT USED FOR UNKNOWN INDICATION
     Route: 065
  2. RANITIDINE HYDROCHLORIDE SANDOZ [Suspect]
     Active Substance: RANITIDINE HYDROCHLORIDE
     Indication: PRODUCT USED FOR UNKNOWN INDICATION
     Dosage: 50 MG, TID
     Route: 065

REACTIONS (12)
  - Pharyngeal paraesthesia [Recovering/Resolving]
  - Lip haemorrhage [Recovering/Resolving]
  - Chapped lips [Recovering/Resolving]
  - Gingival bleeding [Recovering/Resolving]
  - Mouth ulceration [Recovering/Resolving]
  - Sepsis [Recovering/Resolving]
  - Bacterial infection [Recovering/Resolving]
  - Feeling abnormal [Recovering/Resolving]
  - Jaundice [Recovering/Resolving]
  - Tongue discolouration [Recovering/Resolving]
  - Sensitivity of teeth [Recovering/Resolving]
  - Pain [Recovering/Resolving]
